FAERS Safety Report 9029880 (Version 2)
Quarter: 2013Q1

REPORT INFORMATION
  Report Type: Spontaneous
  Country: US (occurrence: US)
  Receive Date: 20130124
  Receipt Date: 20130212
  Transmission Date: 20140127
  Serious: Yes (Other)
  Sender: FDA-Public Use
  Company Number: US-BAYER-2013-009615

PATIENT
  Age: 63 Year
  Sex: Female
  Weight: 85.71 kg

DRUGS (1)
  1. ULTRAVIST [Suspect]
     Indication: COMPUTERISED TOMOGRAM
     Dosage: 100 ML, ONCE
     Dates: start: 20130122, end: 20130122

REACTIONS (4)
  - Urticaria [None]
  - Generalised erythema [None]
  - Local swelling [None]
  - Pruritus [None]
